FAERS Safety Report 12249078 (Version 1)
Quarter: 2016Q2

REPORT INFORMATION
  Report Type: Spontaneous
  Country: GB (occurrence: GB)
  Receive Date: 20160408
  Receipt Date: 20160408
  Transmission Date: 20160815
  Serious: Yes (Disabling)
  Sender: FDA-Public Use
  Company Number: GB-SA-2016SA066981

PATIENT
  Age: 61 Year
  Sex: Female
  Weight: 64 kg

DRUGS (9)
  1. DRONEDARONE [Suspect]
     Active Substance: DRONEDARONE
     Route: 065
     Dates: start: 20160321
  2. BISOPROLOL [Concomitant]
     Active Substance: BISOPROLOL
     Dosage: AS DIRECTED BY CARDIOLOGY FO...
     Dates: start: 20151022
  3. AMIODARONE [Concomitant]
     Active Substance: AMIODARONE
     Indication: HEART RATE
     Dosage: FOR HEART RATE AS DIRECTED BY CARDIOLOGIST
     Dates: start: 20151022
  4. CALCIUM CARBONATE. [Concomitant]
     Active Substance: CALCIUM CARBONATE
     Indication: OSTEOPENIA
     Dosage: TAKE ONE NIGHT + MORNING
     Dates: start: 20150707
  5. ALENDRONIC ACID [Concomitant]
     Active Substance: ALENDRONIC ACID
     Dates: start: 20151208
  6. CO-AMOXICLAV [Concomitant]
     Active Substance: AMOXICILLIN\CLAVULANIC ACID
     Dosage: AS RECOMMENDED BY HOSPITAL
     Dates: start: 20160212, end: 20160226
  7. WARFARIN SODIUM. [Concomitant]
     Active Substance: WARFARIN SODIUM
     Dosage: TAKE AS DIRECTED IN YELLOW BOOK
     Dates: start: 20160201
  8. XARELTO [Concomitant]
     Active Substance: RIVAROXABAN
     Dosage: WITH FOOD
     Dates: start: 20150622
  9. SALBUTAMOL [Concomitant]
     Active Substance: ALBUTEROL
     Indication: DYSPNOEA
     Dates: start: 20151230, end: 20151231

REACTIONS (1)
  - Dyspnoea at rest [Recovering/Resolving]

NARRATIVE: CASE EVENT DATE: 20160321
